FAERS Safety Report 13841132 (Version 1)
Quarter: 2017Q3

REPORT INFORMATION
  Report Type: Other
  Country: HU (occurrence: HU)
  Receive Date: 20170807
  Receipt Date: 20170807
  Transmission Date: 20171127
  Serious: Yes (Other)
  Sender: FDA-Public Use
  Company Number: HU-CHIESI USA INC.-HU-2017CHI000168

PATIENT
  Age: 19 Year
  Sex: Female

DRUGS (1)
  1. TOBRAMYCIN. [Suspect]
     Active Substance: TOBRAMYCIN
     Indication: BACTERIAL DISEASE CARRIER
     Dosage: FOR ONE MONTH, FOLLOWED BY ONE MONTH BREAK, BID
     Route: 055
     Dates: end: 201703

REACTIONS (1)
  - Haemoptysis [Recovered/Resolved]

NARRATIVE: CASE EVENT DATE: 201612
